FAERS Safety Report 7843711-8 (Version None)
Quarter: 2011Q4

REPORT INFORMATION
  Report Type: 
  Country: None (occurrence: None)
  Receive Date: 20111018
  Receipt Date: 20111005
  Transmission Date: 20120403
  Serious: Yes (Other)
  Sender: FDA-Public Use
  Company Number: 2010BI038085

PATIENT
  Age: 61 Year
  Sex: Male
  Weight: 63 kg

DRUGS (7)
  1. RITUXAN [Suspect]
     Indication: FOLLICLE CENTRE LYMPHOMA, FOLLICULAR GRADE I, II, III STAGE III
     Dosage: 500 MG; QD; IV DRIP
     Route: 041
     Dates: start: 20091125, end: 20091125
  2. IBRITUMOMAB TIUXETAN (IBRITUMOMAB TIUXETAN) [Suspect]
     Indication: FOLLICLE CENTRE LYMPHOMA, FOLLICULAR GRADE I, II, III STAGE III
     Dosage: 140 MBQ; 1X; IV
     Route: 042
     Dates: start: 20091117, end: 20091117
  3. RITUXAN [Suspect]
     Indication: FOLLICLE CENTRE LYMPHOMA, FOLLICULAR GRADE I, II, III STAGE III
     Dosage: 500 MG;QD; IV DRIP
     Route: 041
     Dates: start: 20091117, end: 20091117
  4. POLARAMIN (DEXCHLORPHENIRAMINE MALEATE) INJ [Concomitant]
  5. ZEVALIN [Suspect]
     Indication: FOLLICLE CENTRE LYMPHOMA, FOLLICULAR GRADE I, II, III STAGE III
     Dosage: 850 MBQ; 1X; IV
     Route: 042
     Dates: start: 20091125, end: 20091125
  6. SOLU-CORTEF (HYDROCORTISONE SODIUM SUCCINATE) INJ [Concomitant]
  7. AMARYL [Concomitant]

REACTIONS (4)
  - PNEUMATOSIS INTESTINALIS [None]
  - NEUTROPHIL COUNT DECREASED [None]
  - LYMPHOCYTE COUNT DECREASED [None]
  - PROTEIN TOTAL DECREASED [None]
